FAERS Safety Report 11632916 (Version 2)
Quarter: 2016Q2

REPORT INFORMATION
  Report Type: Report from Study
  Country: GB (occurrence: GB)
  Receive Date: 20151015
  Receipt Date: 20160427
  Transmission Date: 20160815
  Serious: Yes (Hospitalization)
  Sender: FDA-Public Use
  Company Number: GB-ASTRAZENECA-2015SE74318

PATIENT
  Age: 20495 Day
  Sex: Male

DRUGS (10)
  1. ASPIRIN. [Suspect]
     Active Substance: ASPIRIN
     Indication: ACUTE CORONARY SYNDROME
     Dosage: NON AZ PRODUCT, MAINTENANCE THERAPY
     Route: 048
  2. ATORVASTATIN [Concomitant]
     Active Substance: ATORVASTATIN
  3. PARACETAMOL [Concomitant]
     Active Substance: ACETAMINOPHEN
  4. TICAGRELOR [Suspect]
     Active Substance: TICAGRELOR
     Indication: ACUTE CORONARY SYNDROME
     Route: 048
     Dates: start: 20150422
  5. TICAGRELOR [Suspect]
     Active Substance: TICAGRELOR
     Indication: THROMBOSIS PROPHYLAXIS
     Route: 048
     Dates: start: 20150422
  6. BISOPROLOL [Concomitant]
     Active Substance: BISOPROLOL
  7. ASPIRIN. [Suspect]
     Active Substance: ASPIRIN
     Indication: THROMBOSIS PROPHYLAXIS
     Dosage: NON AZ PRODUCT, MAINTENANCE THERAPY
     Route: 048
  8. AMLODIPINE [Concomitant]
     Active Substance: AMLODIPINE BESYLATE
  9. GTN [Concomitant]
     Active Substance: NITROGLYCERIN
     Dosage: PRN
  10. AMLODIPINE [Concomitant]
     Active Substance: AMLODIPINE BESYLATE

REACTIONS (2)
  - Bundle branch block right [Recovered/Resolved with Sequelae]
  - Sinus bradycardia [Recovered/Resolved with Sequelae]

NARRATIVE: CASE EVENT DATE: 20150710
